FAERS Safety Report 9547452 (Version 1)
Quarter: 2013Q3

REPORT INFORMATION
  Report Type: Spontaneous
  Country: US (occurrence: None)
  Receive Date: 20130919
  Receipt Date: 20130919
  Transmission Date: 20140515
  Serious: Yes (Hospitalization, Other)
  Sender: FDA-Public Use
  Company Number: UTC-037703

PATIENT
  Age: 61 Year
  Sex: Female
  Weight: 88.6 kg

DRUGS (1)
  1. REMODULIN (5 MILLIGRAM/MILLILITERS, INJECTION FOR INFUSION) (TREPROSTINIL SODIUM) [Suspect]
     Dosage: 48.96 UG/KG (0.034 UG/KG, 1 IN 1 MIN) , SUBCUTANEOUS?
     Route: 058
     Dates: start: 20120920

REACTIONS (4)
  - Infusion site infection [None]
  - Drug dose omission [None]
  - Fear of death [None]
  - Device failure [None]
